FAERS Safety Report 5931026-4 (Version None)
Quarter: 2008Q4

REPORT INFORMATION
  Report Type: 
  Country: None (occurrence: None)
  Receive Date: 20081027
  Receipt Date: 20081017
  Transmission Date: 20090506
  Serious: Yes (Hospitalization, Other)
  Sender: FDA-Public Use
  Company Number: GB-ASTRAZENECA-2007GB00669

PATIENT
  Age: 78 Year
  Sex: Female

DRUGS (20)
  1. OMEPRAZOLE [Suspect]
     Indication: DUODENITIS
     Route: 048
     Dates: start: 19980101, end: 20070101
  2. OMEPRAZOLE [Suspect]
     Indication: DIVERTICULUM
     Route: 048
     Dates: start: 19980101, end: 20070101
  3. OMEPRAZOLE [Suspect]
     Indication: HIATUS HERNIA
     Route: 048
     Dates: start: 19980101, end: 20070101
  4. ADCAL-D3 [Concomitant]
     Indication: HYPOKALAEMIA
     Route: 048
  5. ASPIRIN [Concomitant]
  6. ATORVASTATIN [Concomitant]
  7. ATROVENT [Concomitant]
  8. BUMETANIDE [Concomitant]
     Route: 065
  9. ACETAMINOPHEN W/ CODEINE [Concomitant]
     Route: 065
  10. FUROSEMIDE [Concomitant]
     Route: 065
  11. GABAPENTIN [Concomitant]
     Indication: PAIN
     Route: 048
  12. NITROGLYCERIN [Concomitant]
  13. HYOSCINE HBR HYT [Concomitant]
     Route: 065
  14. IPRATROPIUM BROMIDE [Concomitant]
     Route: 065
  15. LOSARTAN [Concomitant]
  16. QUININE SULPHATE [Concomitant]
     Indication: MUSCLE SPASMS
     Route: 048
  17. SALMETEROL [Concomitant]
     Route: 065
  18. SERETIDE [Concomitant]
  19. SPIRONOLACTONE [Concomitant]
     Route: 065
  20. TAMOXIFEN CITRATE [Concomitant]
     Indication: BREAST CANCER
     Route: 048

REACTIONS (9)
  - AGITATION [None]
  - DIARRHOEA [None]
  - HALLUCINATION [None]
  - HYPOCALCAEMIA [None]
  - HYPOKALAEMIA [None]
  - HYPOMAGNESAEMIA [None]
  - HYPOPHOSPHATAEMIA [None]
  - MUSCLE DISORDER [None]
  - VOMITING [None]
